FAERS Safety Report 8169958-1 (Version None)
Quarter: 2012Q1

REPORT INFORMATION
  Report Type: 
  Country: None (occurrence: None)
  Receive Date: 20120228
  Receipt Date: 20120228
  Transmission Date: 20120608
  Serious: Yes (Death, Life-Threatening, Hospitalization)
  Sender: FDA-Public Use
  Company Number: None

PATIENT
  Age: 78 Year
  Sex: Male
  Weight: 70.306 kg

DRUGS (1)
  1. METHOTREXATE [Suspect]

REACTIONS (3)
  - SEPTIC SHOCK [None]
  - TOXICITY TO VARIOUS AGENTS [None]
  - RASH [None]
